FAERS Safety Report 7540848-8 (Version None)
Quarter: 2011Q2

REPORT INFORMATION
  Report Type: 
  Country: None (occurrence: None)
  Receive Date: 20110603
  Receipt Date: 20110525
  Transmission Date: 20111010
  Serious: Yes (Hospitalization)
  Sender: FDA-Public Use
  Company Number: 2007JP000372

PATIENT
  Age: 1 Year
  Sex: Female
  Weight: 9 kg

DRUGS (5)
  1. DEXMEDETOMIDINE HYDROCHLORIDE [Concomitant]
  2. MIDAZOLAM (MIDAZOLAM) [Concomitant]
  3. PROGRAF [Suspect]
     Indication: LIVER TRANSPLANT
     Dosage: SEE IMAGE
     Route: 048
     Dates: start: 20070116, end: 20070117
  4. PROGRAF [Suspect]
     Indication: LIVER TRANSPLANT
     Dosage: SEE IMAGE
     Route: 048
     Dates: start: 20070118, end: 20070122
  5. FENTANYL [Concomitant]

REACTIONS (4)
  - GAZE PALSY [None]
  - TREMOR [None]
  - TOXIC ENCEPHALOPATHY [None]
  - HYPOMAGNESAEMIA [None]
